FAERS Safety Report 12267846 (Version 1)
Quarter: 2016Q2

REPORT INFORMATION
  Report Type: Spontaneous
  Country: IR (occurrence: IR)
  Receive Date: 20160414
  Receipt Date: 20160414
  Transmission Date: 20160815
  Serious: Yes (Life-Threatening)
  Sender: FDA-Public Use
  Company Number: IR-MYLANLABS-2016M1015287

PATIENT

DRUGS (1)
  1. PHENYTOIN. [Suspect]
     Active Substance: PHENYTOIN
     Indication: CONVULSION PROPHYLAXIS
     Route: 065

REACTIONS (3)
  - Conjunctivitis [Unknown]
  - Stevens-Johnson syndrome [Unknown]
  - Respiratory failure [Recovering/Resolving]
